FAERS Safety Report 6305528-5 (Version None)
Quarter: 2009Q3

REPORT INFORMATION
  Report Type: 
  Country: None (occurrence: None)
  Receive Date: 20090807
  Receipt Date: 20090730
  Transmission Date: 20100115
  Serious: Yes (Hospitalization)
  Sender: FDA-Public Use
  Company Number: GXKR2009ES08712

PATIENT
  Age: 64 Year
  Sex: Female

DRUGS (6)
  1. VALPROIC ACID [Suspect]
     Indication: SCHIZOPHRENIA
     Dosage: 300 MG/DAY INCREASED TO 1500 MG/DAY
  2. CLOZAPINE [Concomitant]
  3. HALOPERIDOL [Concomitant]
  4. OLANZAPINE [Concomitant]
  5. BIPERIDEN HYDROCHLORIDE TAB [Concomitant]
  6. LEVOMEPROMAZINE (LEVOMEPROMAZINE) [Concomitant]

REACTIONS (5)
  - ATELECTASIS [None]
  - PERICARDIAL EFFUSION [None]
  - PLEURAL EFFUSION [None]
  - PRODUCTIVE COUGH [None]
  - PULMONARY EOSINOPHILIA [None]
